FAERS Safety Report 8948208 (Version 1)
Quarter: 2012Q4

REPORT INFORMATION
  Report Type: 
  Country: US (occurrence: US)
  Receive Date: 20121204
  Receipt Date: 20121204
  Transmission Date: 20130627
  Serious: Yes (Hospitalization)
  Sender: FDA-Public Use
  Company Number: US-ELI_LILLY_AND_COMPANY-US201211008246

PATIENT
  Age: 28 Year
  Sex: Male

DRUGS (3)
  1. CYMBALTA [Suspect]
     Indication: ANXIETY
     Dosage: 30 mg, UNK
  2. CYMBALTA [Suspect]
     Dosage: 60 mg, UNK
     Dates: end: 20121020
  3. CANNABIS SATIVA SUBSP. INDICA TOP [Concomitant]
     Dosage: UNK

REACTIONS (2)
  - Psychotic disorder [Recovered/Resolved]
  - Intentional drug misuse [Unknown]
